FAERS Safety Report 7814578-9 (Version None)
Quarter: 2011Q4

REPORT INFORMATION
  Report Type: 
  Country: None (occurrence: None)
  Receive Date: 20111014
  Receipt Date: 20111010
  Transmission Date: 20120403
  Serious: Yes (Death, Hospitalization, Other)
  Sender: FDA-Public Use
  Company Number: AU-B.I. PHARMACEUTICALS,INC./RIDGEFIELD-2011-AU-01076AU

PATIENT
  Sex: Male
  Weight: 77.5 kg

DRUGS (18)
  1. ONBREZ [Concomitant]
  2. PRADAXA [Suspect]
     Indication: ATRIAL FIBRILLATION
  3. ASMOL [Concomitant]
  4. ATROVENT [Concomitant]
  5. CARDIZEM [Concomitant]
     Dosage: 240 MG
  6. PRAVASTATIN [Concomitant]
     Dosage: 10 MG
  7. PULMICORT [Concomitant]
     Dosage: 1MG/2ML RESPULES AND 400 MCG TURBOHALER
  8. VENTOLIN [Concomitant]
     Dosage: 2.5MG / 2.5ML
  9. MURELAX [Concomitant]
     Dosage: 30 MG
  10. PRADAXA [Suspect]
     Indication: CEREBROVASCULAR ACCIDENT PROPHYLAXIS
     Dosage: 220 MG
     Dates: start: 20110726
  11. DITROPAN [Concomitant]
     Dosage: 5 MG
  12. NEXIUM [Concomitant]
     Dosage: 40 MG
  13. PANADOL OSTEO [Concomitant]
  14. ACTONEL WITH CALCIUM (COPACKAGED) [Concomitant]
     Dosage: 35MG/0.25G
  15. NEO-B12 [Concomitant]
  16. PREDNISONE [Concomitant]
  17. RENITEC PLUS [Concomitant]
     Dosage: 20/6 MG
  18. DIGOXIN [Concomitant]
     Dosage: 125 MCG

REACTIONS (10)
  - POSTOPERATIVE WOUND INFECTION [None]
  - GASTROINTESTINAL CARCINOMA [None]
  - ATRIAL FIBRILLATION [None]
  - ABDOMINAL WOUND DEHISCENCE [None]
  - RESPIRATORY FAILURE [None]
  - INTESTINAL OBSTRUCTION [None]
  - CARDIO-RESPIRATORY ARREST [None]
  - HYPOXIA [None]
  - HYPOTENSION [None]
  - DYSPNOEA [None]
